FAERS Safety Report 16466032 (Version 1)
Quarter: 2019Q2

REPORT INFORMATION
  Report Type: Other
  Country: US (occurrence: US)
  Receive Date: 20190621
  Receipt Date: 20190621
  Transmission Date: 20190711
  Serious: No
  Sender: FDA-Public Use
  Company Number: US-ACORDA-ACO_158682_2019

PATIENT
  Sex: Female

DRUGS (3)
  1. INBRIJA [Suspect]
     Active Substance: LEVODOPA
     Indication: PARKINSON^S DISEASE
     Dosage: INHALE 2 CAPSULES BY WAY OF DEVICE, 1 CAPSULE AT A TIME, AS NEEDED FOR SYMPTOMS OF AN OFF PERIOD UP
     Dates: start: 20190504
  2. PARCOPA [Concomitant]
     Active Substance: CARBIDOPA\LEVODOPA
     Dosage: 10 TABLETS DAILY AS DIRECTED
     Route: 048
  3. PREMPRO [Concomitant]
     Active Substance: ESTROGENS, CONJUGATED\MEDROXYPROGESTERONE ACETATE
     Dosage: 1 DOSAGE FORM, QD
     Route: 048

REACTIONS (3)
  - Urinary tract infection [Recovered/Resolved]
  - Condition aggravated [Recovering/Resolving]
  - Fungal infection [Recovering/Resolving]
